FAERS Safety Report 5963386-2 (Version None)
Quarter: 2008Q4

REPORT INFORMATION
  Report Type: 
  Country: None (occurrence: None)
  Receive Date: 20081124
  Receipt Date: 20081117
  Transmission Date: 20090506
  Serious: Yes (Hospitalization)
  Sender: FDA-Public Use
  Company Number: B0546616A

PATIENT
  Age: 86 Year
  Sex: Male

DRUGS (2)
  1. AMOXICILLIN + CLAVULANATE POTASSIUM [Suspect]
     Route: 048
     Dates: start: 20080619, end: 20080626
  2. TROSPIUM CHLORIDE [Concomitant]
     Dosage: 40MG PER DAY
     Route: 048
     Dates: start: 20080516, end: 20080618

REACTIONS (2)
  - ABDOMINAL PAIN [None]
  - JAUNDICE CHOLESTATIC [None]
